FAERS Safety Report 8962338 (Version 1)
Quarter: 2012Q4

REPORT INFORMATION
  Report Type: Spontaneous
  Country: US (occurrence: None)
  Receive Date: 20121211
  Receipt Date: 20121211
  Transmission Date: 20130627
  Serious: No
  Sender: FDA-Public Use
  Company Number: None

PATIENT
  Age: 68 Year
  Sex: Female
  Weight: 74.84 kg

DRUGS (1)
  1. ARTHROTEC [Suspect]
     Indication: ARTHRITIS LUPUS ERYTHEMATOSIS
     Dosage: Ec 75 MG - 200 MCG 1 TAB TWICE DAILY MOUTH
     Route: 048
     Dates: start: 20121030

REACTIONS (6)
  - Abdominal pain upper [None]
  - Gastrointestinal pain [None]
  - Dizziness [None]
  - Nausea [None]
  - Diarrhoea [None]
  - Faecal incontinence [None]
